FAERS Safety Report 17270019 (Version 1)
Quarter: 2020Q1

REPORT INFORMATION
  Report Type: Spontaneous
  Country: FR (occurrence: FR)
  Receive Date: 20200114
  Receipt Date: 20200114
  Transmission Date: 20200409
  Serious: Yes (Hospitalization)
  Sender: FDA-Public Use
  Company Number: FR-MYLANLABS-2020M1003755

PATIENT
  Age: 57 Year
  Sex: Female

DRUGS (4)
  1. DULOXETINE. [Suspect]
     Active Substance: DULOXETINE
     Indication: PRODUCT USED FOR UNKNOWN INDICATION
     Dosage: 84 DOSAGE FORM, QD
     Route: 048
     Dates: start: 20171026, end: 20171027
  2. SERESTA [Suspect]
     Active Substance: OXAZEPAM
     Indication: PRODUCT USED FOR UNKNOWN INDICATION
     Dosage: 40 DOSAGE FORM, QD
     Route: 048
     Dates: start: 20171026, end: 20171027
  3. PAROXETINE. [Suspect]
     Active Substance: PAROXETINE
     Indication: PRODUCT USED FOR UNKNOWN INDICATION
     Dosage: 28 DOSAGE FORM, QD
     Route: 048
     Dates: start: 20171026, end: 20171027
  4. ZOPICLONE [Suspect]
     Active Substance: ZOPICLONE
     Indication: PRODUCT USED FOR UNKNOWN INDICATION
     Dosage: 28 DOSAGE FORM, QD
     Route: 048
     Dates: start: 20171026, end: 20171027

REACTIONS (3)
  - Coma [Recovered/Resolved]
  - Hypothermia [Recovered/Resolved]
  - Drug abuse [Recovered/Resolved with Sequelae]

NARRATIVE: CASE EVENT DATE: 20171026
